FAERS Safety Report 8598589-4 (Version None)
Quarter: 2012Q3

REPORT INFORMATION
  Report Type: 
  Country: None (occurrence: None)
  Receive Date: 20120803
  Receipt Date: 20120725
  Transmission Date: 20120928
  Serious: Yes (Death, Hospitalization)
  Sender: FDA-Public Use
  Company Number: UTC-020357

PATIENT
  Age: 63 Year
  Sex: Female
  Weight: 56.4 kg

DRUGS (3)
  1. ASPIRIN [Concomitant]
  2. TYVASO [Suspect]
     Indication: PULMONARY HYPERTENSION
     Dosage: 18-54 MAY. (4 IN 1 D),INHALATION
     Route: 055
     Dates: start: 20111109
  3. TYVASO [Suspect]

REACTIONS (6)
  - PAIN IN EXTREMITY [None]
  - OEDEMA PERIPHERAL [None]
  - OPEN WOUND [None]
  - PAIN [None]
  - WOUND SECRETION [None]
  - IMPAIRED HEALING [None]
